FAERS Safety Report 6716245-1 (Version None)
Quarter: 2010Q2

REPORT INFORMATION
  Report Type: 
  Country: None (occurrence: None)
  Receive Date: 20100506
  Receipt Date: 20100506
  Transmission Date: 20101027
  Serious: No
  Sender: FDA-Public Use
  Company Number: None

PATIENT
  Sex: Male
  Weight: 51 kg

DRUGS (1)
  1. SINGULAIR [Suspect]

REACTIONS (2)
  - ABNORMAL SLEEP-RELATED EVENT [None]
  - SCREAMING [None]
